FAERS Safety Report 21420810 (Version 1)
Quarter: 2022Q4

REPORT INFORMATION
  Report Type: Spontaneous
  Country: GB (occurrence: GB)
  Receive Date: 20221007
  Receipt Date: 20221007
  Transmission Date: 20230113
  Serious: Yes (Hospitalization)
  Sender: FDA-Public Use
  Company Number: GB-TEVA-2022-GB-2080245

PATIENT
  Sex: Male

DRUGS (14)
  1. GABAPENTIN [Interacting]
     Active Substance: GABAPENTIN
     Indication: Complex regional pain syndrome
     Dosage: THREE TIMES A DAY
     Route: 065
  2. BACLOFEN [Interacting]
     Active Substance: BACLOFEN
     Indication: Complex regional pain syndrome
     Dosage: THE RATE OF INFUSION- 860 MICROG/24H
     Route: 037
  3. ATROPINE [Suspect]
     Active Substance: ATROPINE
     Indication: Bradycardia
     Route: 042
     Dates: start: 201911
  4. AMITRIPTYLINE [Concomitant]
     Active Substance: AMITRIPTYLINE
     Indication: Complex regional pain syndrome
     Route: 065
  5. TRAMADOL [Concomitant]
     Active Substance: TRAMADOL
     Indication: Complex regional pain syndrome
     Dosage: 50-100MG- THREE TIMES A DAY -AS OCCASION REQUIRES
     Route: 065
  6. MIRTAZAPINE [Concomitant]
     Active Substance: MIRTAZAPINE
     Indication: Complex regional pain syndrome
     Route: 065
  7. QUETIAPINE [Concomitant]
     Active Substance: QUETIAPINE
     Indication: Complex regional pain syndrome
     Route: 065
  8. QUETIAPINE [Concomitant]
     Active Substance: QUETIAPINE
     Indication: Complex regional pain syndrome
     Route: 065
  9. ZOPICLONE [Concomitant]
     Active Substance: ZOPICLONE
     Indication: Complex regional pain syndrome
     Dosage: 7.5 MILLIGRAM DAILY;
     Route: 065
  10. LIDOCAINE [Concomitant]
     Active Substance: LIDOCAINE
     Indication: Complex regional pain syndrome
     Dosage: TT OD, PATCH
     Route: 065
  11. NAPROXEN [Concomitant]
     Active Substance: NAPROXEN
     Indication: Complex regional pain syndrome
     Dosage: 1000 MILLIGRAM DAILY;
     Route: 065
  12. MEFENAMIC ACID [Concomitant]
     Active Substance: MEFENAMIC ACID
     Indication: Complex regional pain syndrome
     Dosage: THREE TIMES A DAY- AS REQUIRED
     Route: 065
  13. PANTOPRAZOLE [Concomitant]
     Active Substance: PANTOPRAZOLE
     Indication: Drug therapy
     Dosage: 40 MILLIGRAM DAILY;
     Route: 065
  14. NICORETTE [Concomitant]
     Active Substance: NICOTINE
     Indication: Product used for unknown indication
     Dosage: 25 MILLIGRAM DAILY; EVERY MORNING
     Route: 065

REACTIONS (5)
  - Brain stem syndrome [Recovered/Resolved]
  - Potentiating drug interaction [Recovered/Resolved]
  - Overdose [Recovered/Resolved]
  - Treatment failure [Unknown]
  - Generalised tonic-clonic seizure [Recovered/Resolved]

NARRATIVE: CASE EVENT DATE: 20191101
